FAERS Safety Report 5847053-1 (Version None)
Quarter: 2008Q3

REPORT INFORMATION
  Report Type: 
  Country: None (occurrence: None)
  Receive Date: 20080815
  Receipt Date: 20080805
  Transmission Date: 20090109
  Serious: Yes (Other)
  Sender: FDA-Public Use
  Company Number: US-PFIZER INC-2008065992

PATIENT
  Sex: Female

DRUGS (2)
  1. LYRICA [Suspect]
  2. NEURONTIN [Suspect]

REACTIONS (10)
  - BURNING SENSATION [None]
  - DIABETES MELLITUS [None]
  - DIZZINESS [None]
  - HEART RATE INCREASED [None]
  - HYPERTENSION [None]
  - ILL-DEFINED DISORDER [None]
  - INJECTION [None]
  - PRURITUS [None]
  - SKIN IRRITATION [None]
  - URTICARIA [None]
